FAERS Safety Report 7202884-0 (Version None)
Quarter: 2010Q4

REPORT INFORMATION
  Report Type: 
  Country: None (occurrence: None)
  Receive Date: 20101229
  Receipt Date: 20101221
  Transmission Date: 20110411
  Serious: Yes (Hospitalization)
  Sender: FDA-Public Use
  Company Number: JP-ABBOTT-10P-087-0691005-00

PATIENT
  Age: 69 Year
  Sex: Male

DRUGS (8)
  1. LEUPROLIDE ACETATE [Suspect]
     Indication: PROSTATE CANCER STAGE II
     Route: 058
     Dates: start: 20080619
  2. NORVASC [Concomitant]
     Indication: HYPERTENSION
     Dosage: 5MG, 1 D
     Route: 048
  3. GASTER D [Concomitant]
     Indication: GASTRIC ULCER
     Dosage: 40MG, 1D
     Route: 048
  4. POLARAMINE [Concomitant]
     Indication: URTICARIA
     Dosage: 2MG, 1 D
     Route: 048
  5. ASPIRIN [Concomitant]
     Indication: CEREBRAL INFARCTION
     Dosage: 100MG, 1D
     Route: 048
  6. DETRUSITOL [Concomitant]
     Indication: HYPERTONIC BLADDER
     Dosage: 4MG, 1 D
     Route: 048
     Dates: end: 20090603
  7. STAYBLA [Concomitant]
     Indication: HYPERTONIC BLADDER
     Dosage: 1 TAB, 2 IN 1 D
     Route: 048
     Dates: start: 20090604, end: 20091223
  8. VESICARE [Concomitant]
     Indication: HYPERTONIC BLADDER
     Dosage: 5MG, 1 IN 1 D
     Route: 048
     Dates: start: 20091214

REACTIONS (6)
  - BENIGN PROSTATIC HYPERPLASIA [None]
  - COMPRESSION FRACTURE [None]
  - ENTEROCOLITIS [None]
  - INJECTION SITE ERYTHEMA [None]
  - INJECTION SITE INDURATION [None]
  - INJECTION SITE SWELLING [None]
